FAERS Safety Report 5607553-6 (Version None)
Quarter: 2008Q1

REPORT INFORMATION
  Report Type: 
  Country: None (occurrence: None)
  Receive Date: 20080130
  Receipt Date: 20080117
  Transmission Date: 20080703
  Serious: Yes (Death, Hospitalization)
  Sender: FDA-Public Use
  Company Number: PHNU2007DE03012

PATIENT
  Age: 5 Year
  Sex: Female
  Weight: 12.6 kg

DRUGS (3)
  1. SANDIMMUNE [Suspect]
     Indication: COLITIS ULCERATIVE
     Dosage: 60MG/DAY
     Route: 042
     Dates: start: 20070823, end: 20070830
  2. VFEND [Suspect]
     Indication: PROPHYLAXIS
     Dosage: 100MG/DAY
     Route: 048
     Dates: start: 20070810, end: 20070822
  3. SANDIMMUNE [Suspect]
     Indication: COLITIS ULCERATIVE
     Dosage: 40MG UP TO 160MG/DAY
     Route: 048
     Dates: start: 20070810, end: 20070822

REACTIONS (10)
  - ACCIDENTAL OVERDOSE [None]
  - ACUTE HEPATIC FAILURE [None]
  - COAGULOPATHY [None]
  - COMA HEPATIC [None]
  - DRUG INTERACTION [None]
  - DRUG TOXICITY [None]
  - HAEMODIALYSIS [None]
  - INTRA-ABDOMINAL HAEMORRHAGE [None]
  - RENAL FAILURE [None]
  - TRANSAMINASES INCREASED [None]
